FAERS Safety Report 5671229-X (Version None)
Quarter: 2008Q2

REPORT INFORMATION
  Report Type: 
  Country: None (occurrence: None)
  Receive Date: 20080313
  Receipt Date: 20080227
  Transmission Date: 20081010
  Serious: Yes (Other)
  Sender: FDA-Public Use
  Company Number: IDR-00022

PATIENT
  Sex: Female

DRUGS (1)
  1. INDERAL LA [Suspect]

REACTIONS (1)
  - LEUKAEMIA [None]
